FAERS Safety Report 17648238 (Version 1)
Quarter: 2020Q2

REPORT INFORMATION
  Report Type: Spontaneous
  Country: DE (occurrence: DE)
  Receive Date: 20200408
  Receipt Date: 20200408
  Transmission Date: 20200713
  Serious: Yes (Other)
  Sender: FDA-Public Use
  Company Number: DE-ARRAY-2020-07709

PATIENT

DRUGS (2)
  1. PREGABALIN. [Concomitant]
     Active Substance: PREGABALIN
     Indication: PRODUCT USED FOR UNKNOWN INDICATION
     Dosage: 25 MG, BID (2/DAY)
     Route: 065
  2. MEKTOVI [Suspect]
     Active Substance: BINIMETINIB
     Indication: METASTATIC MALIGNANT MELANOMA
     Dosage: 15 MG, BID (2/DAY)
     Route: 048
     Dates: start: 201912

REACTIONS (5)
  - Diarrhoea [Recovering/Resolving]
  - Off label use [Unknown]
  - Deep vein thrombosis [Recovering/Resolving]
  - Acute kidney injury [Recovering/Resolving]
  - Hypercreatininaemia [Recovering/Resolving]

NARRATIVE: CASE EVENT DATE: 201912
